FAERS Safety Report 16543393 (Version 1)
Quarter: 2019Q3

REPORT INFORMATION
  Report Type: Spontaneous
  Country: DE (occurrence: DE)
  Receive Date: 20190709
  Receipt Date: 20190709
  Transmission Date: 20191004
  Serious: Yes (Hospitalization)
  Sender: FDA-Public Use
  Company Number: DE-ACCORD-137669

PATIENT
  Age: 58 Year
  Sex: Male
  Weight: 65 kg

DRUGS (7)
  1. EUTHYROX [Concomitant]
     Active Substance: LEVOTHYROXINE SODIUM
     Dosage: 50 UG, 1-0-0, TABLETS
     Route: 048
  2. RAMIPRIL. [Concomitant]
     Active Substance: RAMIPRIL
     Dosage: 5 MG, 1-0-0, TABLETS
     Route: 048
  3. CEFUROXIME. [Concomitant]
     Active Substance: CEFUROXIME
     Dosage: TABLETS
     Route: 048
  4. METHOTREXATE. [Suspect]
     Active Substance: METHOTREXATE
     Indication: PRODUCT USED FOR UNKNOWN INDICATION
     Dosage: 15 MG, 1 / WEEK. LAST 04.05.2017, SOLUTION FOR INJECTION / INFUSION
     Route: 058
  5. AUGMENTAN [Concomitant]
     Active Substance: AMOXICILLIN\CLAVULANATE POTASSIUM
     Dosage: TABLETS
     Route: 048
  6. BISOPROLOL [Concomitant]
     Active Substance: BISOPROLOL
     Dosage: 2.5 MG, 1/2-0-0, TABLETS
     Route: 048
  7. LODOTRA [Concomitant]
     Active Substance: PREDNISONE
     Dosage: 2 MG, 0-0-1, TABLETS
     Route: 048

REACTIONS (5)
  - Nasopharyngitis [Unknown]
  - Cough [Unknown]
  - Musculoskeletal discomfort [Unknown]
  - Rash macular [Unknown]
  - Pyrexia [Unknown]
